FAERS Safety Report 6764903-5 (Version None)
Quarter: 2010Q2

REPORT INFORMATION
  Report Type: 
  Country: None (occurrence: None)
  Receive Date: 20100609
  Receipt Date: 20100502
  Transmission Date: 20101027
  Serious: No
  Sender: FDA-Public Use
  Company Number: 2010010820

PATIENT
  Age: 2 Year
  Sex: Male

DRUGS (2)
  1. CHILDREN'S ZYRTEC ALLERGY [Suspect]
     Indication: HYPERSENSITIVITY
     Dosage: 2.5 ML ONCE DAILY,ORAL
     Route: 048
     Dates: end: 20100501
  2. PARACETAMOL (PARACETAMOL) [Suspect]
     Indication: PAIN
     Dosage: 5 ML ONCE DAILY,ORAL
     Route: 048
     Dates: start: 20100401

REACTIONS (2)
  - LETHARGY [None]
  - PRODUCT QUALITY ISSUE [None]
